FAERS Safety Report 6250502-0 (Version None)
Quarter: 2009Q2

REPORT INFORMATION
  Report Type: 
  Country: None (occurrence: None)
  Receive Date: 20090630
  Receipt Date: 20090625
  Transmission Date: 20091009
  Serious: Yes (Death)
  Sender: FDA-Public Use
  Company Number: US-ROCHE-637748

PATIENT
  Sex: Female
  Weight: 78 kg

DRUGS (1)
  1. CAPECITABINE [Suspect]
     Dosage: TWO WEEKS ON, ONE WEEK OFF
     Route: 048
     Dates: start: 20090415, end: 20090607

REACTIONS (1)
  - BREAST CANCER [None]
